FAERS Safety Report 9825381 (Version 1)
Quarter: 2013Q4

REPORT INFORMATION
  Report Type: Spontaneous
  Country: US (occurrence: None)
  Receive Date: 20131223
  Receipt Date: 20131223
  Transmission Date: 20140711
  Serious: Yes (Other)
  Sender: FDA-Public Use
  Company Number: 219345LEO

PATIENT
  Sex: Male

DRUGS (3)
  1. PICATO [Suspect]
     Route: 061
     Dates: start: 201205
  2. GLUCOPYRROLATE (GLYCOPYRRONIUM BROMIDE) [Concomitant]
  3. ARMOUR THYROID (THYROID) [Concomitant]

REACTIONS (2)
  - Rosacea [None]
  - Incorrect drug administration duration [None]
